FAERS Safety Report 22311618 (Version 1)
Quarter: 2023Q2

REPORT INFORMATION
  Report Type: Spontaneous
  Country: JP (occurrence: JP)
  Receive Date: 20230511
  Receipt Date: 20230511
  Transmission Date: 20230721
  Serious: Yes (Death, Other)
  Sender: FDA-Public Use
  Company Number: JP-TAKEDA-2023TJP005609

PATIENT
  Age: 8 Decade
  Sex: Female

DRUGS (4)
  1. TEDUGLUTIDE [Suspect]
     Active Substance: TEDUGLUTIDE
     Indication: Short-bowel syndrome
     Dosage: 0.08 MILLILITER, QD
     Route: 058
     Dates: start: 20230410, end: 20230501
  2. TEDUGLUTIDE [Suspect]
     Active Substance: TEDUGLUTIDE
     Indication: Short-bowel syndrome
     Dosage: 0.08 MILLILITER, QD
     Route: 058
     Dates: start: 20230410, end: 20230501
  3. TEDUGLUTIDE [Suspect]
     Active Substance: TEDUGLUTIDE
     Indication: Short-bowel syndrome
     Dosage: 0.08 MILLILITER, QD
     Route: 058
     Dates: start: 20230410, end: 20230501
  4. TEDUGLUTIDE [Suspect]
     Active Substance: TEDUGLUTIDE
     Indication: Short-bowel syndrome
     Dosage: 0.08 MILLILITER, QD
     Route: 058
     Dates: start: 20230410, end: 20230501

REACTIONS (2)
  - Death [Fatal]
  - Underdose [Unknown]

NARRATIVE: CASE EVENT DATE: 20230410
